FAERS Safety Report 8018086-4 (Version None)
Quarter: 2012Q1

REPORT INFORMATION
  Report Type: 
  Country: None (occurrence: None)
  Receive Date: 20120103
  Receipt Date: 20111228
  Transmission Date: 20120608
  Serious: No
  Sender: FDA-Public Use
  Company Number: US-PFIZER INC-2011276440

PATIENT
  Sex: Male
  Weight: 60.32 kg

DRUGS (3)
  1. LIPITOR [Suspect]
     Indication: LIPIDS INCREASED
  2. TEKTURNA [Concomitant]
     Indication: HYPERTENSION
     Dosage: 300 MG, UNK
  3. LIPITOR [Suspect]
     Indication: BLOOD CHOLESTEROL INCREASED
     Dosage: 10 MG, ONCE A DAY
     Route: 048
     Dates: start: 20111107, end: 20111209

REACTIONS (1)
  - HEADACHE [None]
